FAERS Safety Report 13643551 (Version 2)
Quarter: 2017Q3

REPORT INFORMATION
  Report Type: Spontaneous
  Country: JP (occurrence: JP)
  Receive Date: 20170612
  Receipt Date: 20170815
  Transmission Date: 20171127
  Serious: Yes (Death, Life-Threatening, Hospitalization)
  Sender: FDA-Public Use
  Company Number: JP-SA-2017SA103526

PATIENT
  Age: 79 Year
  Sex: Male
  Weight: 54 kg

DRUGS (1)
  1. JEVTANA [Suspect]
     Active Substance: CABAZITAXEL
     Indication: HORMONE-REFRACTORY PROSTATE CANCER
     Dosage: FOR 4 WEEKS
     Route: 042
     Dates: start: 20170509, end: 20170509

REACTIONS (6)
  - Condition aggravated [Recovering/Resolving]
  - Gallbladder enlargement [Recovering/Resolving]
  - Abdominal pain upper [Recovering/Resolving]
  - Ascites [Recovering/Resolving]
  - Cholecystitis [Recovering/Resolving]
  - Abscess [Recovering/Resolving]

NARRATIVE: CASE EVENT DATE: 20170606
